FAERS Safety Report 25362510 (Version 1)
Quarter: 2025Q2

REPORT INFORMATION
  Report Type: Spontaneous
  Country: VN (occurrence: VN)
  Receive Date: 20250527
  Receipt Date: 20250527
  Transmission Date: 20250717
  Serious: Yes (Life-Threatening, Hospitalization, Other)
  Sender: MERCK SHARP & DOHME LLC
  Company Number: VN-ASTRAZENECA-202412GLO021981VN

PATIENT
  Sex: Female

DRUGS (11)
  1. PEMBROLIZUMAB [Suspect]
     Active Substance: PEMBROLIZUMAB
     Indication: HER2 negative breast cancer
     Dosage: 200 MG, ONCE EVERY 3 WK
     Route: 050
     Dates: start: 20240618, end: 20241010
  2. CODALGIN FORTE [Concomitant]
     Indication: Adrenal insufficiency
     Dosage: 1 DOSAGE FORM, BID
     Route: 050
     Dates: start: 20241206
  3. POTASSIUM CHLORIDE [Concomitant]
     Active Substance: POTASSIUM CHLORIDE
     Indication: Hypokalaemia
     Dosage: 3 DOSAGE FORM, TID
     Route: 050
     Dates: start: 20241209
  4. POTASSIUM CHLORIDE [Concomitant]
     Active Substance: POTASSIUM CHLORIDE
     Indication: Hypokalaemia
     Dosage: 1 DOSAGE FORM, BID
     Route: 050
     Dates: start: 20241009
  5. MORIAMIN FORTE [Concomitant]
     Indication: Hypokalaemia
     Dosage: 1 DOSAGE FORM, BID
     Route: 050
     Dates: start: 20241003
  6. PACLITAXEL [Suspect]
     Active Substance: PACLITAXEL
     Indication: HER2 negative breast cancer
     Dosage: 80 MG/M2, ONCE EVERY 3 WK
     Route: 050
     Dates: start: 20240618, end: 20240821
  7. HYDROCOLACYL [Concomitant]
     Indication: Adrenal insufficiency
     Dosage: 7.5 MG, QD
     Route: 050
     Dates: start: 20241210
  8. CYCLOPHOSPHAMIDE [Suspect]
     Active Substance: CYCLOPHOSPHAMIDE
     Indication: HER2 negative breast cancer
     Dosage: 600 MG/M2, ONCE EVERY 3 WK
     Route: 050
     Dates: start: 20241016, end: 20241212
  9. TEFOSTAD [Concomitant]
     Indication: Hepatitis B
     Route: 050
     Dates: start: 20240917
  10. CARBOPLATIN [Suspect]
     Active Substance: CARBOPLATIN
     Indication: HER2 negative breast cancer
     Route: 050
     Dates: start: 20240618, end: 20240828
  11. DOXORUBICIN [Suspect]
     Active Substance: DOXORUBICIN
     Indication: HER2 negative breast cancer
     Dosage: 60 MG/M2, ONCE EVERY 3 WK
     Route: 050
     Dates: start: 20241016, end: 20241212

REACTIONS (1)
  - Hypokalaemia [Recovering/Resolving]

NARRATIVE: CASE EVENT DATE: 20241226
